FAERS Safety Report 13439151 (Version 4)
Quarter: 2017Q3

REPORT INFORMATION
  Report Type: Spontaneous
  Country: KR (occurrence: KR)
  Receive Date: 20170412
  Receipt Date: 20170801
  Transmission Date: 20171127
  Serious: No
  Sender: FDA-Public Use
  Company Number: KR-009507513-1704KOR004032

PATIENT
  Age: 80 Year
  Sex: Male
  Weight: 77 kg

DRUGS (59)
  1. MABTHERA [Concomitant]
     Active Substance: RITUXIMAB
     Dosage: 720 MG, ONCE, CYCLE 3
     Route: 042
     Dates: start: 20160805, end: 20160805
  2. SOLONDO [Concomitant]
     Active Substance: PREDNISOLONE
     Indication: PREMEDICATION
     Dosage: 30 MG THREE TIMES A DAY (40 MG FOR MORNING AND 30 MG FOR LUNCH AND DINNER TIME)
     Route: 048
     Dates: start: 20160625, end: 20160629
  3. SOLONDO [Concomitant]
     Active Substance: PREDNISOLONE
     Dosage: 40 MG THREE TIMES A DAY (40 MG FOR MORNING AND 30 MG FOR LUNCH AND DINNER TIME)
     Route: 048
     Dates: start: 20160714, end: 20160718
  4. ALOXI [Concomitant]
     Active Substance: PALONOSETRON HYDROCHLORIDE
     Dosage: 5 ML, ONCE
     Route: 042
     Dates: start: 20160826, end: 20160826
  5. DOXORUBICIN HYDROCHLORIDE. [Concomitant]
     Active Substance: DOXORUBICIN HYDROCHLORIDE
     Dosage: 50 MG, ONCE, CYCLE 2
     Route: 042
     Dates: start: 20160714, end: 20160714
  6. VINCRISTINE SULFATE. [Concomitant]
     Active Substance: VINCRISTINE SULFATE
     Dosage: 1.9 MG, ONCE; STRENGTH: 1MG/ML 2 ML, CYCLE 4
     Route: 042
     Dates: start: 20160826, end: 20160826
  7. MABTHERA [Concomitant]
     Active Substance: RITUXIMAB
     Indication: DIFFUSE LARGE B-CELL LYMPHOMA
     Dosage: 720 MG, ONCE, CYCLE 1
     Route: 042
     Dates: start: 20160625, end: 20160625
  8. MABTHERA [Concomitant]
     Active Substance: RITUXIMAB
     Dosage: 720 MG, ONCE, CYCLE 2
     Route: 042
     Dates: start: 20160714, end: 20160714
  9. TORSEMIDE. [Concomitant]
     Active Substance: TORSEMIDE
     Indication: OEDEMA PERIPHERAL
     Dosage: 5 MG, TWO TIMES A WEAK AT MONDAY AND THURSDAY
     Route: 048
     Dates: end: 20160621
  10. ENDOXAN [Concomitant]
     Active Substance: CYCLOPHOSPHAMIDE
     Indication: DIFFUSE LARGE B-CELL LYMPHOMA
     Dosage: 765 MG, ONCE, CYCLE 1
     Route: 042
     Dates: start: 20160625, end: 20160625
  11. ENDOXAN [Concomitant]
     Active Substance: CYCLOPHOSPHAMIDE
     Dosage: 765 MG, ONCE, CYCLE 2
     Route: 042
     Dates: start: 20160714, end: 20160714
  12. ENDOXAN [Concomitant]
     Active Substance: CYCLOPHOSPHAMIDE
     Dosage: 765 MG, ONCE, CYCLE 6
     Route: 042
     Dates: start: 20161011, end: 20161011
  13. DOXORUBICIN HYDROCHLORIDE. [Concomitant]
     Active Substance: DOXORUBICIN HYDROCHLORIDE
     Indication: DIFFUSE LARGE B-CELL LYMPHOMA
     Dosage: 50 MG, ONCE, CYCLE 1
     Route: 042
     Dates: start: 20160625, end: 20160625
  14. DOXORUBICIN HYDROCHLORIDE. [Concomitant]
     Active Substance: DOXORUBICIN HYDROCHLORIDE
     Dosage: 50 MG, ONCE, CYCLE 6
     Route: 042
     Dates: start: 20161011, end: 20161011
  15. MABTHERA [Concomitant]
     Active Substance: RITUXIMAB
     Dosage: 720 MG, ONCE, CYCLE 4
     Route: 042
     Dates: start: 20160826, end: 20160826
  16. ALOXI [Concomitant]
     Active Substance: PALONOSETRON HYDROCHLORIDE
     Indication: PROPHYLAXIS OF NAUSEA AND VOMITING
     Dosage: 0.25 MG, ONCE
     Route: 042
     Dates: start: 20160625, end: 20160625
  17. ALOXI [Concomitant]
     Active Substance: PALONOSETRON HYDROCHLORIDE
     Dosage: 5 ML, ONCE
     Route: 042
     Dates: start: 20160805, end: 20160805
  18. ALOXI [Concomitant]
     Active Substance: PALONOSETRON HYDROCHLORIDE
     Dosage: 5 ML, ONCE
     Route: 042
     Dates: start: 20160920, end: 20160920
  19. HANMI TAMS [Concomitant]
     Indication: BENIGN PROSTATIC HYPERPLASIA
     Dosage: 1 CAPSULE (0.2MG), QD
     Route: 048
     Dates: start: 20160620, end: 20160627
  20. MUCOPECT [Concomitant]
     Indication: VIRAL UPPER RESPIRATORY TRACT INFECTION
     Dosage: 30 MG, TID
     Route: 048
     Dates: start: 20160624, end: 20160626
  21. EMEND (FOSAPREPITANT DIMEGLUMINE) [Suspect]
     Active Substance: FOSAPREPITANT DIMEGLUMINE
     Dosage: 150 MG, ONCE
     Route: 042
     Dates: start: 20160805, end: 20160805
  22. EMEND (FOSAPREPITANT DIMEGLUMINE) [Suspect]
     Active Substance: FOSAPREPITANT DIMEGLUMINE
     Dosage: 150 MG, ONCE
     Route: 042
     Dates: start: 20160826, end: 20160826
  23. DOXORUBICIN HYDROCHLORIDE. [Concomitant]
     Active Substance: DOXORUBICIN HYDROCHLORIDE
     Dosage: 50 MG, ONCE, CYCLE 4
     Route: 042
     Dates: start: 20160826, end: 20160826
  24. VINCRISTINE SULFATE. [Concomitant]
     Active Substance: VINCRISTINE SULFATE
     Dosage: 1.9 MG, ONCE; STRENGTH: 1MG/ML  2 ML, CYCLE 2
     Route: 042
     Dates: start: 20160714, end: 20160714
  25. MABTHERA [Concomitant]
     Active Substance: RITUXIMAB
     Dosage: 720 MG, ONCE, CYCLE 5
     Route: 042
     Dates: start: 20160920, end: 20160920
  26. ALOXI [Concomitant]
     Active Substance: PALONOSETRON HYDROCHLORIDE
     Dosage: 5 ML, ONCE
     Route: 042
     Dates: start: 20160714, end: 20160714
  27. LIPITOR [Concomitant]
     Active Substance: ATORVASTATIN CALCIUM
     Indication: PROPHYLAXIS
     Dosage: 10MG (1 TABLET), QD
     Route: 048
  28. SPIRONOLACTONE. [Concomitant]
     Active Substance: SPIRONOLACTONE
     Indication: OEDEMA PERIPHERAL
     Dosage: 25 MG, TWO TIMES A WEAK AT MONDAY AND THURSDAY
     Route: 048
  29. ANYCOUGH [Concomitant]
     Active Substance: THEOBROMINE
     Indication: VIRAL UPPER RESPIRATORY TRACT INFECTION
     Dosage: 1 CAPSULE (300MG), QD
     Route: 048
     Dates: start: 20160624, end: 20160626
  30. PRADAXA [Concomitant]
     Active Substance: DABIGATRAN ETEXILATE MESYLATE
     Indication: ATRIAL FIBRILLATION
     Dosage: 1 CAPSULE (110MG), BID
     Route: 048
     Dates: start: 20160623, end: 20160713
  31. ENDOXAN [Concomitant]
     Active Substance: CYCLOPHOSPHAMIDE
     Dosage: 765 MG, ONCE, CYCLE 3
     Route: 042
     Dates: start: 20160805, end: 20160805
  32. VINCRISTINE SULFATE. [Concomitant]
     Active Substance: VINCRISTINE SULFATE
     Dosage: 1.9 MG, ONCE; STRENGTH: 1MG/ML 2 ML, CYCLE 6
     Route: 042
     Dates: start: 20161011, end: 20161011
  33. SOLONDO [Concomitant]
     Active Substance: PREDNISOLONE
     Dosage: 30 MG THREE TIMES A DAY (40 MG FOR MORNING AND 30 MG FOR LUNCH AND DINNER TIME)
     Route: 048
     Dates: start: 20160805, end: 20160809
  34. SOLONDO [Concomitant]
     Active Substance: PREDNISOLONE
     Dosage: 30 MG THREE TIMES A DAY (40 MG FOR MORNING AND 30 MG FOR LUNCH AND DINNER TIME)
     Route: 048
     Dates: start: 20161011, end: 20161015
  35. ALOXI [Concomitant]
     Active Substance: PALONOSETRON HYDROCHLORIDE
     Dosage: 5 ML, ONCE
     Route: 042
     Dates: start: 20161011, end: 20161011
  36. CANDEMORE [Concomitant]
     Indication: HYPERTENSION
     Dosage: 16 MG, QD
     Route: 048
     Dates: end: 20160627
  37. DICHLODIDE [Concomitant]
     Indication: HYPERTENSION
     Dosage: 17.5 MG, QD
     Route: 048
  38. MOKTIN [Concomitant]
     Indication: PRODUCTIVE COUGH
     Dosage: 3 CAPSULE, BID
     Route: 048
     Dates: start: 20160616, end: 20160619
  39. EMEND (FOSAPREPITANT DIMEGLUMINE) [Suspect]
     Active Substance: FOSAPREPITANT DIMEGLUMINE
     Indication: PROPHYLAXIS OF NAUSEA AND VOMITING
     Dosage: 150 MG, ONCE
     Route: 042
     Dates: start: 20160625, end: 20160625
  40. ENDOXAN [Concomitant]
     Active Substance: CYCLOPHOSPHAMIDE
     Dosage: 765 MG, ONCE, CYCLE 4
     Route: 042
     Dates: start: 20160826, end: 20160826
  41. DOXORUBICIN HYDROCHLORIDE. [Concomitant]
     Active Substance: DOXORUBICIN HYDROCHLORIDE
     Dosage: 50 MG, ONCE, CYCLE 5
     Route: 042
     Dates: start: 20160920, end: 20160920
  42. VINCRISTINE SULFATE. [Concomitant]
     Active Substance: VINCRISTINE SULFATE
     Dosage: 1.9 MG, ONCE; STRENGTH: 1MG/ML 2 ML, CYCLE 5
     Route: 042
     Dates: start: 20160920, end: 20160920
  43. SOLONDO [Concomitant]
     Active Substance: PREDNISOLONE
     Dosage: 30 MG THREE TIMES A DAY (40 MG FOR MORNING AND 30 MG FOR LUNCH AND DINNER TIME)
     Route: 048
     Dates: start: 20160826, end: 20160830
  44. ISOPTIN [Concomitant]
     Active Substance: VERAPAMIL HYDROCHLORIDE
     Indication: ATRIAL FIBRILLATION
     Dosage: 180 MG (1 TABLET), QD
     Route: 048
  45. EMEND (FOSAPREPITANT DIMEGLUMINE) [Suspect]
     Active Substance: FOSAPREPITANT DIMEGLUMINE
     Dosage: 150 MG, ONCE
     Route: 042
     Dates: start: 20160714, end: 20160714
  46. ENDOXAN [Concomitant]
     Active Substance: CYCLOPHOSPHAMIDE
     Dosage: 765 MG, ONCE, CYCLE 5
     Route: 042
     Dates: start: 20160920, end: 20160920
  47. DOXORUBICIN HYDROCHLORIDE. [Concomitant]
     Active Substance: DOXORUBICIN HYDROCHLORIDE
     Dosage: 50 MG, ONCE, CYCLE 3
     Route: 042
     Dates: start: 20160805, end: 20160805
  48. VINCRISTINE SULFATE. [Concomitant]
     Active Substance: VINCRISTINE SULFATE
     Dosage: 1.9 MG, ONCE; STRENGTH: 1MG/ML 2 ML, CYCLE 3
     Route: 042
     Dates: start: 20160805, end: 20160805
  49. FAMOTIDINE. [Concomitant]
     Active Substance: FAMOTIDINE
     Indication: PROPHYLAXIS
     Dosage: 20 MG, BID
     Route: 048
     Dates: start: 20160625, end: 20161011
  50. ZOLMIN [Concomitant]
     Active Substance: TRIAZOLAM
     Indication: PROPHYLAXIS
     Dosage: 1 TABLET (0.125 MG), QD
     Route: 048
     Dates: start: 20160616, end: 20160621
  51. LODIEN [Concomitant]
     Indication: HYPERTENSION
     Dosage: 2.5 MG, QD
     Route: 048
  52. EMEND (FOSAPREPITANT DIMEGLUMINE) [Suspect]
     Active Substance: FOSAPREPITANT DIMEGLUMINE
     Dosage: 150 MG, ONCE
     Route: 042
     Dates: start: 20160920, end: 20160920
  53. EMEND (FOSAPREPITANT DIMEGLUMINE) [Suspect]
     Active Substance: FOSAPREPITANT DIMEGLUMINE
     Dosage: 150 MG, ONCE
     Route: 042
     Dates: start: 20161011, end: 20161011
  54. VINCRISTINE SULFATE. [Concomitant]
     Active Substance: VINCRISTINE SULFATE
     Indication: DIFFUSE LARGE B-CELL LYMPHOMA
     Dosage: 1.9 MG, ONCE; STRENGTH: 1MG/ML, 1 ML, CYCLE 1
     Route: 042
     Dates: start: 20160625, end: 20160625
  55. MABTHERA [Concomitant]
     Active Substance: RITUXIMAB
     Dosage: 720 MG, ONCE, CYCLE 6
     Route: 042
     Dates: start: 20161011, end: 20161011
  56. SOLONDO [Concomitant]
     Active Substance: PREDNISOLONE
     Dosage: 30 MG THREE TIMES A DAY (40 MG FOR MORNING AND 30 MG FOR LUNCH AND DINNER TIME)
     Route: 048
     Dates: start: 20160920, end: 20160924
  57. ZANAPAM [Concomitant]
     Indication: PROPHYLAXIS
     Dosage: 0.25 MG, QD
     Route: 048
     Dates: start: 20160623
  58. ATACAND PLUS [Concomitant]
     Active Substance: CANDESARTAN CILEXETIL\HYDROCHLOROTHIAZIDE
     Indication: HYPERTENSION
     Dosage: 1 TABLET, QD
     Route: 048
     Dates: start: 20160616, end: 20160727
  59. DILATREND [Concomitant]
     Active Substance: CARVEDILOL
     Indication: HYPERTENSION
     Dosage: 8 MG (1 CAPSULE), QD
     Route: 048

REACTIONS (1)
  - Face injury [Recovered/Resolved]

NARRATIVE: CASE EVENT DATE: 20160625
